FAERS Safety Report 11659248 (Version 1)
Quarter: 2015Q4

REPORT INFORMATION
  Report Type: Spontaneous
  Country: US (occurrence: None)
  Receive Date: 20151023
  Receipt Date: 20151023
  Transmission Date: 20160304
  Serious: Yes (Hospitalization)
  Sender: FDA-Public Use
  Company Number: None

PATIENT
  Age: 65 Year
  Sex: Female

DRUGS (1)
  1. SUTENT [Suspect]
     Active Substance: SUNITINIB MALATE
     Indication: RENAL CANCER
     Route: 048
     Dates: start: 20150408, end: 20150930

REACTIONS (4)
  - Neoplasm malignant [None]
  - Disease recurrence [None]
  - Pulmonary oedema [None]
  - No therapeutic response [None]

NARRATIVE: CASE EVENT DATE: 20151001
